FAERS Safety Report 18842855 (Version 1)
Quarter: 2021Q1

REPORT INFORMATION
  Report Type: Spontaneous
  Country: GB (occurrence: GB)
  Receive Date: 20210203
  Receipt Date: 20210203
  Transmission Date: 20210419
  Serious: Yes (Other)
  Sender: FDA-Public Use
  Company Number: GB-TEVA-2021-GB-1872712

PATIENT
  Age: 38 Year
  Sex: Female
  Weight: 69.85 kg

DRUGS (3)
  1. HYDROCORTISONE. [Suspect]
     Active Substance: HYDROCORTISONE
     Indication: ECZEMA
     Route: 061
     Dates: start: 2007, end: 2020
  2. EUMOVATE [Suspect]
     Active Substance: CLOBETASONE BUTYRATE
     Indication: ECZEMA
     Route: 061
     Dates: start: 2016, end: 2020
  3. BETNOVATE [Suspect]
     Active Substance: BETAMETHASONE
     Indication: ECZEMA
     Route: 061
     Dates: start: 2017, end: 2020

REACTIONS (12)
  - Steroid withdrawal syndrome [Unknown]
  - Headache [Recovering/Resolving]
  - Lymphadenopathy [Not Recovered/Not Resolved]
  - Body temperature fluctuation [Recovering/Resolving]
  - Swelling face [Recovered/Resolved with Sequelae]
  - Erythema [Not Recovered/Not Resolved]
  - Dependence [Unknown]
  - Skin weeping [Not Recovered/Not Resolved]
  - Insomnia [Recovering/Resolving]
  - Skin exfoliation [Not Recovered/Not Resolved]
  - Pruritus [Not Recovered/Not Resolved]
  - Incorrect product administration duration [Unknown]

NARRATIVE: CASE EVENT DATE: 20200105
